FAERS Safety Report 6975883-1 (Version None)
Quarter: 2010Q3

REPORT INFORMATION
  Report Type: 
  Country: None (occurrence: None)
  Receive Date: 20100910
  Receipt Date: 20100831
  Transmission Date: 20110219
  Serious: Yes (Hospitalization, Other)
  Sender: FDA-Public Use
  Company Number: US-SANOFI-AVENTIS-2010SA038442

PATIENT
  Age: 71 Year
  Sex: Male
  Weight: 89 kg

DRUGS (7)
  1. MULTAQ [Suspect]
     Indication: ATRIAL FIBRILLATION
     Route: 048
     Dates: start: 20100208, end: 20100628
  2. LASIX [Concomitant]
  3. PANTOPRAZOLE [Concomitant]
     Indication: DYSPEPSIA
  4. ZANTAC [Concomitant]
  5. SIMVASTATIN [Concomitant]
     Dates: start: 20050818
  6. NEURONTIN [Concomitant]
     Dates: start: 20030901
  7. WARFARIN [Concomitant]
     Indication: ATRIAL FIBRILLATION
     Dosage: ADJUSTING SCALE

REACTIONS (8)
  - ATRIAL FIBRILLATION [None]
  - BUNDLE BRANCH BLOCK LEFT [None]
  - CARDIAC FAILURE [None]
  - COUGH [None]
  - DYSPNOEA [None]
  - OEDEMA PERIPHERAL [None]
  - PALPITATIONS [None]
  - VENTRICULAR EXTRASYSTOLES [None]
